FAERS Safety Report 24231611 (Version 1)
Quarter: 2024Q3

REPORT INFORMATION
  Report Type: Spontaneous
  Country: US (occurrence: US)
  Receive Date: 20240821
  Receipt Date: 20240821
  Transmission Date: 20241016
  Serious: Yes (Other)
  Sender: SANOFI AVENTIS
  Company Number: US-SA-2024SA241377

PATIENT
  Age: 37 Year
  Sex: Female

DRUGS (2)
  1. ELIGLUSTAT [Suspect]
     Active Substance: ELIGLUSTAT
     Indication: Gaucher^s disease type I
     Dosage: 84 MG, BID
  2. ELIGLUSTAT [Suspect]
     Active Substance: ELIGLUSTAT
     Dosage: 84 MG, QD

REACTIONS (5)
  - Ichthyosis [Recovering/Resolving]
  - Skin exfoliation [Recovering/Resolving]
  - Rash [Recovering/Resolving]
  - Acanthosis [Recovering/Resolving]
  - Dry skin [Recovering/Resolving]
